FAERS Safety Report 20462109 (Version 1)
Quarter: 2022Q1

REPORT INFORMATION
  Report Type: Spontaneous
  Country: US (occurrence: None)
  Receive Date: 20220211
  Receipt Date: 20220211
  Transmission Date: 20220423
  Serious: Yes (Disabling)
  Sender: FDA-Public Use
  Company Number: None

PATIENT
  Age: 76 Year
  Sex: Female
  Weight: 67.5 kg

DRUGS (3)
  1. AZITHROMYCIN [Suspect]
     Active Substance: AZITHROMYCIN
     Indication: Mycobacterium avium complex infection
     Dosage: FREQUENCY : DAILY;?
     Route: 041
     Dates: start: 20211012, end: 20220125
  2. AZITHROMYCIN [Suspect]
     Active Substance: AZITHROMYCIN
     Indication: Pneumonia bacterial
  3. Sodium chloride 0.9% 100mL [Concomitant]
     Dates: start: 20211012, end: 20220125

REACTIONS (1)
  - Deafness [None]

NARRATIVE: CASE EVENT DATE: 20220125
